FAERS Safety Report 5060944-7 (Version None)
Quarter: 2006Q3

REPORT INFORMATION
  Report Type: 
  Country: None (occurrence: None)
  Receive Date: 20060720
  Receipt Date: 20060720
  Transmission Date: 20061208
  Serious: Yes (Hospitalization, Other)
  Sender: FDA-Public Use
  Company Number: None

PATIENT
  Sex: Male

DRUGS (4)
  1. ARIPIPRAZOLE     20 MG [Suspect]
     Indication: BIPOLAR DISORDER
     Dosage: 20 MG  DAILY  PO
     Route: 048
     Dates: start: 20060425, end: 20060427
  2. LITHIUM CARBONATE [Concomitant]
  3. LORAZEPAM [Concomitant]
  4. TEMAZEPAM [Concomitant]

REACTIONS (7)
  - HYPERHIDROSIS [None]
  - HYPERTENSION [None]
  - INCONTINENCE [None]
  - MUSCLE RIGIDITY [None]
  - PYREXIA [None]
  - TACHYCARDIA [None]
  - TREMOR [None]
